FAERS Safety Report 6641679-3 (Version None)
Quarter: 2010Q1

REPORT INFORMATION
  Report Type: 
  Country: None (occurrence: None)
  Receive Date: 20100316
  Receipt Date: 20100310
  Transmission Date: 20100710
  Serious: Yes (Hospitalization)
  Sender: FDA-Public Use
  Company Number: 2008SP020954

PATIENT
  Age: 50 Year
  Sex: Female

DRUGS (6)
  1. PEG-INTRON [Suspect]
     Indication: HEPATITIS C
     Dosage: 150 MCG;QW;SC ; 80 MCG;QW;SC
     Route: 058
     Dates: start: 20080919, end: 20080926
  2. PEG-INTRON [Suspect]
     Indication: HEPATITIS C
     Dosage: 150 MCG;QW;SC ; 80 MCG;QW;SC
     Route: 058
     Dates: start: 20081002
  3. RIBAVIRIN [Suspect]
     Indication: HEPATITIS C
     Dosage: 1200 MG;QD;PO
     Route: 048
     Dates: start: 20080919
  4. ELTROMBOPAG [Suspect]
     Indication: THROMBOCYTOPENIA
     Dosage: 25 MG;QD;PO
     Route: 048
     Dates: start: 20080905, end: 20080919
  5. PLACEBO [Suspect]
     Indication: THROMBOCYTOPENIA
     Dosage: QD;PO
     Route: 048
     Dates: start: 20080919
  6. LISINOPRIL [Concomitant]

REACTIONS (4)
  - APPENDICITIS [None]
  - CAECITIS [None]
  - HEPATIC CIRRHOSIS [None]
  - PLATELET COUNT DECREASED [None]
